FAERS Safety Report 7391189-3 (Version None)
Quarter: 2011Q2

REPORT INFORMATION
  Report Type: 
  Country: None (occurrence: None)
  Receive Date: 20110404
  Receipt Date: 20100505
  Transmission Date: 20111010
  Serious: No
  Sender: FDA-Public Use
  Company Number: US-PFIZER INC-2010017022

PATIENT
  Sex: Female
  Weight: 55.8 kg

DRUGS (5)
  1. NUVARING [Concomitant]
     Indication: CONTRACEPTION
  2. LEVOTHYROXINE SODIUM [Concomitant]
     Indication: HYPOTHYROIDISM
     Dosage: 50 UG, 1X/DAY
     Route: 048
  3. ZOLOFT [Suspect]
     Indication: GASTRIC DISORDER
  4. ZOLOFT [Suspect]
     Indication: ANXIETY
     Dosage: 50 MG, 1X/DAY
     Route: 048
     Dates: start: 20070101
  5. ALBUTEROL [Concomitant]
     Dosage: UNK

REACTIONS (4)
  - EMOTIONAL DISORDER [None]
  - FEELING ABNORMAL [None]
  - DRUG INEFFECTIVE [None]
  - IRRITABILITY [None]
